FAERS Safety Report 9845514 (Version 1)
Quarter: 2013Q4

REPORT INFORMATION
  Report Type: Spontaneous
  Country: US (occurrence: None)
  Receive Date: 20131219
  Receipt Date: 20131219
  Transmission Date: 20140711
  Serious: Yes (Hospitalization)
  Sender: FDA-Public Use
  Company Number: 163-20785-13091838

PATIENT
  Age: 81 Year
  Sex: Female

DRUGS (9)
  1. THALOMID [Suspect]
     Indication: PLASMA CELL MYELOMA
     Route: 048
     Dates: start: 200811
  2. ASPIRIN (ACETYLSALICYLIC ACID) [Concomitant]
  3. ACETAMINOPHEN CODEINE #3 (GALENIC/PARACETAMOL/CODEINE/) [Concomitant]
  4. BISAC-EVAC (BISACODYL) [Concomitant]
  5. CALCIUM 500+D (CALCIUM D3 ^STADA^) [Concomitant]
  6. CALCIUM CARBONATE (CALCIUM CARBONATE) (CALCIUM CARBONATE) [Concomitant]
  7. CEPACOL SORE THROAT (TYLENOL SINUS MEDICATION) [Concomitant]
  8. FOLIC ACID (FOLIC ACID) [Concomitant]
  9. FUROSEMIDE (FUROSEMIDE) [Concomitant]

REACTIONS (4)
  - Pneumonia [None]
  - Cough [None]
  - Pyrexia [None]
  - Lethargy [None]
